FAERS Safety Report 6175358-6 (Version None)
Quarter: 2009Q2

REPORT INFORMATION
  Report Type: 
  Country: None (occurrence: None)
  Receive Date: 20090429
  Receipt Date: 20090421
  Transmission Date: 20091009
  Serious: Yes (Death)
  Sender: FDA-Public Use
  Company Number: 1000004976

PATIENT
  Age: 26 Year
  Sex: Female

DRUGS (3)
  1. LEXAPRO [Suspect]
     Indication: BIPOLAR DISORDER
     Dosage: (10 MG), ORAL
     Route: 048
     Dates: start: 20050901, end: 20070116
  2. LEXAPRO [Suspect]
     Indication: MAJOR DEPRESSION
     Dosage: (10 MG), ORAL
     Route: 048
     Dates: start: 20050901, end: 20070116
  3. LEXAPRO [Suspect]
     Indication: PSYCHOTIC DISORDER
     Dosage: (10 MG), ORAL
     Route: 048
     Dates: start: 20050901, end: 20070116

REACTIONS (4)
  - ANXIETY [None]
  - COMPLETED SUICIDE [None]
  - PAIN [None]
  - SUICIDAL IDEATION [None]
